FAERS Safety Report 17835597 (Version 2)
Quarter: 2020Q2

REPORT INFORMATION
  Report Type: Report from Study
  Country: US (occurrence: US)
  Receive Date: 20200528
  Receipt Date: 20200609
  Transmission Date: 20200714
  Serious: No
  Sender: FDA-Public Use
  Company Number: US-SA-2020SA138089

PATIENT

DRUGS (9)
  1. MEDROXYPROGESTERONE [Concomitant]
     Active Substance: MEDROXYPROGESTERONE
  2. CICLOPIROX. [Concomitant]
     Active Substance: CICLOPIROX
  3. DUPILUMAB [Suspect]
     Active Substance: DUPILUMAB
     Indication: DERMATITIS ATOPIC
     Dosage: 600 MG, 1X
     Route: 058
     Dates: start: 20200509, end: 20200509
  4. PREGABALIN. [Concomitant]
     Active Substance: PREGABALIN
  5. FLUOCINONIDE. [Concomitant]
     Active Substance: FLUOCINONIDE
  6. AIMOVIG [Concomitant]
     Active Substance: ERENUMAB-AOOE
  7. PAZEO [Concomitant]
     Active Substance: OLOPATADINE HYDROCHLORIDE
  8. DUPILUMAB [Suspect]
     Active Substance: DUPILUMAB
     Dosage: 300 MG, QOW
     Route: 058
     Dates: start: 202005
  9. GABAPENTIN. [Concomitant]
     Active Substance: GABAPENTIN

REACTIONS (4)
  - Sleep disorder [Not Recovered/Not Resolved]
  - Dermatitis atopic [Unknown]
  - Rash [Unknown]
  - Pruritus [Unknown]

NARRATIVE: CASE EVENT DATE: 2020
